FAERS Safety Report 4501587-0 (Version None)
Quarter: 2004Q3

REPORT INFORMATION
  Report Type: 
  Country: None (occurrence: None)
  Receive Date: 20040928
  Receipt Date: 20040831
  Transmission Date: 20050211
  Serious: No
  Sender: FDA-Public Use
  Company Number: 04P-163-0271955-00

PATIENT
  Sex: Male

DRUGS (1)
  1. HUMIRA [Suspect]
     Dosage: SUBCUTANEOUS
     Route: 058

REACTIONS (5)
  - ABDOMINAL DISCOMFORT [None]
  - BACK PAIN [None]
  - CHEST PAIN [None]
  - HYPERTENSION [None]
  - VISION BLURRED [None]
